FAERS Safety Report 9107437 (Version 2)
Quarter: 2013Q4

REPORT INFORMATION
  Report Type: Spontaneous
  Country: GB (occurrence: GB)
  Receive Date: 20130221
  Receipt Date: 20131011
  Transmission Date: 20140711
  Serious: Yes (Hospitalization, Disabling)
  Sender: FDA-Public Use
  Company Number: GB-WATSON-2013-02568

PATIENT
  Age: 18 Year
  Sex: Female

DRUGS (5)
  1. AMITRIPTYLINE [Suspect]
     Indication: HEADACHE
     Dosage: 10-30 MG ONCE DAILY
     Route: 048
     Dates: start: 20120112, end: 20120215
  2. NORTRIPTYLINE HYDROCHLORIDE (WATSON LABORATORIES) [Suspect]
     Indication: HEADACHE
     Dosage: 10-30MG ONCE DAILY
     Route: 048
     Dates: end: 20121122
  3. FLUOXETINE (UNKNOWN) [Suspect]
     Indication: DEPRESSION
     Dosage: 20 MG, UNKNOWN
     Route: 048
     Dates: start: 20111005, end: 20121220
  4. LANSOPRAZOLE [Concomitant]
     Indication: GASTROOESOPHAGEAL REFLUX DISEASE
     Dosage: 30MG
     Route: 048
     Dates: start: 20120413, end: 20130123
  5. LAXIDO [Concomitant]
     Indication: CONSTIPATION
     Dosage: 1 DF, PRN
     Route: 048
     Dates: start: 20120509, end: 20130123

REACTIONS (4)
  - Syncope [Recovered/Resolved]
  - Dizziness [Recovered/Resolved]
  - Muscular weakness [Recovered/Resolved]
  - Gastrooesophageal reflux disease [Recovered/Resolved]
